FAERS Safety Report 10143878 (Version 1)
Quarter: 2014Q2

REPORT INFORMATION
  Report Type: Spontaneous
  Country: PL (occurrence: PL)
  Receive Date: 20140430
  Receipt Date: 20140430
  Transmission Date: 20141212
  Serious: Yes (Hospitalization, Other)
  Sender: FDA-Public Use
  Company Number: PL-009507513-1404POL012829

PATIENT
  Age: 50 Year
  Sex: Female
  Weight: 59 kg

DRUGS (6)
  1. VICTRELIS [Suspect]
     Indication: CHRONIC HEPATITIS C
     Dosage: 800 MG, TID
     Route: 048
     Dates: start: 20140108
  2. COPEGUS [Suspect]
     Indication: CHRONIC HEPATITIS C
     Dosage: 1000 MG, QD
     Route: 048
     Dates: start: 20131210, end: 20140319
  3. COPEGUS [Suspect]
     Dosage: 400 MG, QD
     Route: 048
     Dates: start: 20140320
  4. PEGASYS [Suspect]
     Indication: CHRONIC HEPATITIS C
     Dosage: 180 MICROGRAM, QW
     Route: 058
     Dates: start: 20131210
  5. EUTHYROX [Concomitant]
     Indication: HORMONE REPLACEMENT THERAPY
     Dosage: TOTAL DAILY DOSAGE: 100 MCG (1 X 100 MCG).
     Dates: start: 2005
  6. FOLIC ACID [Concomitant]
     Indication: ANAEMIA MEGALOBLASTIC
     Dosage: TOTAL DAILY DOSAGE: 45 MG (3 X15 MG)
     Dates: start: 201401

REACTIONS (2)
  - Anaemia [Recovered/Resolved]
  - Transfusion [Recovered/Resolved]
